FAERS Safety Report 19406486 (Version 1)
Quarter: 2021Q2

REPORT INFORMATION
  Report Type: Spontaneous
  Country: FR (occurrence: FR)
  Receive Date: 20210611
  Receipt Date: 20210611
  Transmission Date: 20210717
  Serious: Yes (Other)
  Sender: FDA-Public Use
  Company Number: FR-HIKMA PHARMACEUTICALS USA INC.-FR-H14001-21-54575

PATIENT
  Age: 54 Year
  Sex: Male
  Weight: 63 kg

DRUGS (4)
  1. GLUCOSE [Concomitant]
     Active Substance: DEXTROSE
     Indication: ENTEROCOCCAL INFECTION
     Dosage: VANCOMYCIN (3000 MG/DAY DILUTED IN 5% GLUCOSE, 31.25 MG/ML AT A MAXIMAL DOSAGE OF 4ML/HOUR)
     Route: 042
  2. VANCOMYCIN [Suspect]
     Active Substance: VANCOMYCIN
     Indication: ENTEROCOCCAL INFECTION
     Dosage: 24 HOURS OF VANCOMYCIN (3000 MG/DAY DILUTED IN 5% GLUCOSE, 31.25MG/ML AT A MAXIMAL DOSAGE OF 4ML/HOU
     Route: 042
  3. VANCOMYCIN [Suspect]
     Active Substance: VANCOMYCIN
     Indication: SYSTEMIC INFECTION
  4. VANCOMYCIN [Suspect]
     Active Substance: VANCOMYCIN
     Indication: ENTEROBACTER INFECTION

REACTIONS (8)
  - Cutaneous calcification [Recovered/Resolved]
  - Drug level increased [Recovered/Resolved]
  - Incorrect dose administered [Recovered/Resolved]
  - Skin necrosis [Recovered/Resolved]
  - Calciphylaxis [Recovered/Resolved]
  - Skin toxicity [Recovered/Resolved]
  - Infusion site calcification [Recovered/Resolved]
  - Infusion site extravasation [Recovered/Resolved]
